FAERS Safety Report 23951320 (Version 1)
Quarter: 2024Q2

REPORT INFORMATION
  Report Type: Spontaneous
  Country: CA (occurrence: CA)
  Receive Date: 20240607
  Receipt Date: 20240607
  Transmission Date: 20240716
  Serious: Yes (Other)
  Sender: FDA-Public Use
  Company Number: CA-PFIZER INC-202400187542

PATIENT
  Age: 90 Year
  Sex: Male

DRUGS (14)
  1. VYNDAMAX [Suspect]
     Active Substance: TAFAMIDIS
     Indication: Cardiac amyloidosis
     Dosage: 61 MG, 1X/DAY
     Route: 048
     Dates: start: 20240115, end: 2024
  2. OMEPRAZOLE [Concomitant]
     Active Substance: DONEPEZIL HYDROCHLORIDE\OMEPRAZOLE\OMEPRAZOLE MAGNESIUM
  3. PERINDOPRIL [Concomitant]
     Active Substance: PERINDOPRIL
  4. LOPERAMIDE [Concomitant]
     Active Substance: LOPERAMIDE
  5. METFORMIN [Concomitant]
     Active Substance: METFORMIN HYDROCHLORIDE
  6. SPIRONOLACTONE [Concomitant]
     Active Substance: SPIRONOLACTONE
  7. SYNTHROID [Concomitant]
     Active Substance: LEVOTHYROXINE SODIUM
  8. ESCITALOPRAM [Concomitant]
     Active Substance: ESCITALOPRAM OXALATE
  9. ACETAMINOPHEN [Concomitant]
     Active Substance: ACETAMINOPHEN
  10. TAMSULOSIN [Concomitant]
     Active Substance: TAMSULOSIN
  11. APIXABAN [Concomitant]
     Active Substance: APIXABAN
  12. VITAMINS [Concomitant]
     Active Substance: VITAMINS
  13. VITAMIN D3 [Concomitant]
     Active Substance: CHOLECALCIFEROL
  14. BISOPROLOL [Concomitant]
     Active Substance: BISOPROLOL\BISOPROLOL FUMARATE

REACTIONS (1)
  - Cerebrovascular accident [Unknown]

NARRATIVE: CASE EVENT DATE: 20240401
